FAERS Safety Report 9209454 (Version 1)
Quarter: 2013Q1

REPORT INFORMATION
  Report Type: Spontaneous
  Country: US (occurrence: None)
  Receive Date: 20120820
  Receipt Date: 20120820
  Transmission Date: 20140127
  Serious: No
  Sender: FDA-Public Use
  Company Number: 1000031247

PATIENT
  Age: 50 Year
  Sex: Female
  Weight: 68.94 kg

DRUGS (2)
  1. VIIBRYD (VILAZODONE) [Suspect]
  2. TOVIAZ (FESOTERODINE FUMARATE) (FESOTERODINE FURMARATE) [Concomitant]

REACTIONS (1)
  - Mania [None]
